FAERS Safety Report 8883036 (Version 1)
Quarter: 2012Q4

REPORT INFORMATION
  Report Type: Report from Study
  Country: DE (occurrence: DE)
  Receive Date: 20121102
  Receipt Date: 20121102
  Transmission Date: 20130627
  Serious: Yes (Hospitalization, Other)
  Sender: FDA-Public Use
  Company Number: DE-ABBOTT-12P-062-0999997-00

PATIENT
  Age: 60 None
  Sex: Male

DRUGS (4)
  1. HUMIRA [Suspect]
     Indication: ANKYLOSING SPONDYLITIS
     Dosage: \
     Route: 058
     Dates: start: 20100114, end: 20120830
  2. HUMIRA [Suspect]
     Dates: start: 20120913
  3. ARCOXIA [Concomitant]
     Indication: ANKYLOSING SPONDYLITIS
  4. RAMIPRIL [Concomitant]
     Indication: PRODUCT USED FOR UNKNOWN INDICATION
     Dosage: unk.

REACTIONS (3)
  - Foot deformity [Unknown]
  - Synoviorthesis [Recovering/Resolving]
  - Synoviorthesis [Unknown]
